FAERS Safety Report 25709354 (Version 1)
Quarter: 2025Q3

REPORT INFORMATION
  Report Type: Spontaneous
  Country: US (occurrence: US)
  Receive Date: 20250821
  Receipt Date: 20250821
  Transmission Date: 20251021
  Serious: No
  Sender: Haleon PLC
  Company Number: US-HALEON-2258804

PATIENT
  Age: 66 Year
  Sex: Female

DRUGS (1)
  1. TUMS EXTRA STRENGTH, SMOOTHIES [Suspect]
     Active Substance: CALCIUM CARBONATE
     Indication: Abdominal discomfort

REACTIONS (1)
  - Dysgeusia [Not Recovered/Not Resolved]
